FAERS Safety Report 16083286 (Version 1)
Quarter: 2019Q1

REPORT INFORMATION
  Report Type: Spontaneous
  Country: US (occurrence: US)
  Receive Date: 20190318
  Receipt Date: 20190318
  Transmission Date: 20190418
  Serious: No
  Sender: FDA-Public Use
  Company Number: US-TEVA-2019-US-1024593

PATIENT
  Sex: Female

DRUGS (1)
  1. TELMISARTAN. [Suspect]
     Active Substance: TELMISARTAN
     Indication: BLOOD PRESSURE MEASUREMENT
     Dates: start: 2015

REACTIONS (10)
  - Back pain [Unknown]
  - Peripheral swelling [Unknown]
  - Palpitations [Unknown]
  - Therapy cessation [Unknown]
  - Diarrhoea [Unknown]
  - Heart rate decreased [Unknown]
  - Nausea [Unknown]
  - Myalgia [Unknown]
  - Blood pressure fluctuation [Unknown]
  - Abdominal discomfort [Unknown]
